FAERS Safety Report 6343394-2 (Version None)
Quarter: 2009Q3

REPORT INFORMATION
  Report Type: 
  Country: None (occurrence: None)
  Receive Date: 20090908
  Receipt Date: 20090901
  Transmission Date: 20100115
  Serious: Yes (Other)
  Sender: FDA-Public Use
  Company Number: PHHY2009FR37166

PATIENT
  Age: 72 Year
  Sex: Female

DRUGS (7)
  1. ACLASTA [Suspect]
  2. STILNOX [Concomitant]
  3. ESCITALOPRAM [Concomitant]
  4. PARACETAMOL [Concomitant]
  5. LYRICA [Concomitant]
  6. BETASERC [Concomitant]
     Dosage: UNK
  7. CACIT [Concomitant]
     Dosage: UNK

REACTIONS (2)
  - LUPUS VASCULITIS [None]
  - RASH [None]
